FAERS Safety Report 9480753 (Version 1)
Quarter: 2013Q3

REPORT INFORMATION
  Report Type: Spontaneous
  Country: US (occurrence: US)
  Receive Date: 20130828
  Receipt Date: 20130828
  Transmission Date: 20140515
  Serious: Yes (Hospitalization, Other)
  Sender: FDA-Public Use
  Company Number: US-AMGEN-KDL111801

PATIENT
  Age: 45 Year
  Sex: Male

DRUGS (2)
  1. ENBREL [Suspect]
     Indication: PSORIATIC ARTHROPATHY
     Dosage: 50 MG, QWK
     Route: 058
     Dates: start: 20040305
  2. DIABETIC MEDICATION NOS [Concomitant]
     Dosage: UNK UNK, UNK
     Route: 048

REACTIONS (2)
  - Blood glucose increased [Unknown]
  - Infection parasitic [Unknown]
